FAERS Safety Report 8596203-5 (Version None)
Quarter: 2012Q3

REPORT INFORMATION
  Report Type: 
  Country: None (occurrence: None)
  Receive Date: 20120815
  Receipt Date: 20120806
  Transmission Date: 20120928
  Serious: Yes (Hospitalization)
  Sender: FDA-Public Use
  Company Number: US-GLAXOSMITHKLINE-B0725816A

PATIENT
  Age: 38 Year
  Sex: Male

DRUGS (2)
  1. AVANDIA [Suspect]
     Indication: DIABETES MELLITUS
     Dosage: 4MG PER DAY
     Route: 048
     Dates: start: 20010205, end: 20090715
  2. AVANDARYL [Suspect]
     Indication: DIABETES MELLITUS
     Route: 048

REACTIONS (3)
  - DEPRESSION [None]
  - CEREBROVASCULAR ACCIDENT [None]
  - CHEST PAIN [None]
